FAERS Safety Report 6011821-6 (Version None)
Quarter: 2008Q4

REPORT INFORMATION
  Report Type: 
  Country: None (occurrence: None)
  Receive Date: 20081218
  Receipt Date: 20081027
  Transmission Date: 20090506
  Serious: No
  Sender: FDA-Public Use
  Company Number: US-ABBOTT-08P-163-0484032-00

PATIENT
  Sex: Male
  Weight: 149.82 kg

DRUGS (4)
  1. MERIDIA [Suspect]
     Indication: WEIGHT CONTROL
     Route: 048
     Dates: start: 20080701, end: 20080727
  2. MERIDIA [Suspect]
     Route: 048
     Dates: start: 20080827, end: 20081001
  3. MERIDIA [Suspect]
     Route: 048
     Dates: start: 20081001
  4. HYDROCHLOROTHIAZIDE [Concomitant]
     Indication: HYPERTENSION
     Route: 048

REACTIONS (1)
  - DRUG INEFFECTIVE [None]
